FAERS Safety Report 4754269-4 (Version None)
Quarter: 2005Q3

REPORT INFORMATION
  Report Type: 
  Country: None (occurrence: None)
  Receive Date: 20050825
  Receipt Date: 20050810
  Transmission Date: 20060218
  Serious: Yes (Other)
  Sender: FDA-Public Use
  Company Number: PHEH2005US07718

PATIENT
  Age: 75 Year
  Sex: Male

DRUGS (4)
  1. VISUDYNE [Suspect]
     Indication: CHOROIDAL NEOVASCULARISATION
     Dates: start: 20031201, end: 20031201
  2. VISUDYNE [Suspect]
     Indication: MACULAR DEGENERATION
     Dates: start: 20031201, end: 20031201
  3. VISUDYNE [Suspect]
     Indication: CHOROIDAL NEOVASCULARISATION
     Dates: start: 20020101, end: 20020101
  4. VISUDYNE [Suspect]
     Indication: MACULAR DEGENERATION
     Dates: start: 20020101, end: 20020101

REACTIONS (6)
  - CHOROIDAL NEOVASCULARISATION [None]
  - DISEASE PROGRESSION [None]
  - EYE DISORDER [None]
  - MACULAR DEGENERATION [None]
  - POST PROCEDURAL COMPLICATION [None]
  - SCOTOMA [None]
